FAERS Safety Report 20784141 (Version 1)
Quarter: 2022Q2

REPORT INFORMATION
  Report Type: Report from Study
  Country: US (occurrence: US)
  Receive Date: 20220504
  Receipt Date: 20220504
  Transmission Date: 20220721
  Serious: Yes (Hospitalization)
  Sender: FDA-Public Use
  Company Number: US-TAKEDA-2022TUS028477

PATIENT
  Age: 56 Year
  Sex: Female

DRUGS (16)
  1. TEDUGLUTIDE [Suspect]
     Active Substance: TEDUGLUTIDE
     Indication: Short-bowel syndrome
     Dosage: 5 MILLIGRAM, 3/WEEK
     Route: 042
     Dates: start: 20170711, end: 20180208
  2. TEDUGLUTIDE [Suspect]
     Active Substance: TEDUGLUTIDE
     Indication: Short-bowel syndrome
     Dosage: 5 MILLIGRAM, 3/WEEK
     Route: 042
     Dates: start: 20170711, end: 20180208
  3. TEDUGLUTIDE [Suspect]
     Active Substance: TEDUGLUTIDE
     Indication: Short-bowel syndrome
     Dosage: 5 MILLIGRAM, 3/WEEK
     Route: 042
     Dates: start: 20170711, end: 20180208
  4. TEDUGLUTIDE [Suspect]
     Active Substance: TEDUGLUTIDE
     Indication: Short-bowel syndrome
     Dosage: 5 MILLIGRAM, 3/WEEK
     Route: 042
     Dates: start: 20170711, end: 20180208
  5. TEDUGLUTIDE [Suspect]
     Active Substance: TEDUGLUTIDE
     Dosage: 5 MILLIGRAM, 3/WEEK
     Route: 042
     Dates: start: 20180605, end: 20180914
  6. TEDUGLUTIDE [Suspect]
     Active Substance: TEDUGLUTIDE
     Dosage: 5 MILLIGRAM, 3/WEEK
     Route: 042
     Dates: start: 20180605, end: 20180914
  7. TEDUGLUTIDE [Suspect]
     Active Substance: TEDUGLUTIDE
     Dosage: 5 MILLIGRAM, 3/WEEK
     Route: 042
     Dates: start: 20180605, end: 20180914
  8. TEDUGLUTIDE [Suspect]
     Active Substance: TEDUGLUTIDE
     Dosage: 5 MILLIGRAM, 3/WEEK
     Route: 042
     Dates: start: 20180605, end: 20180914
  9. TEDUGLUTIDE [Suspect]
     Active Substance: TEDUGLUTIDE
     Dosage: 0.25 MILLIGRAM, 4/WEEK
     Route: 042
     Dates: start: 20180914, end: 20201201
  10. TEDUGLUTIDE [Suspect]
     Active Substance: TEDUGLUTIDE
     Dosage: 0.25 MILLIGRAM, 4/WEEK
     Route: 042
     Dates: start: 20180914, end: 20201201
  11. TEDUGLUTIDE [Suspect]
     Active Substance: TEDUGLUTIDE
     Dosage: 0.25 MILLIGRAM, 4/WEEK
     Route: 042
     Dates: start: 20180914, end: 20201201
  12. TEDUGLUTIDE [Suspect]
     Active Substance: TEDUGLUTIDE
     Dosage: 0.25 MILLIGRAM, 4/WEEK
     Route: 042
     Dates: start: 20180914, end: 20201201
  13. FOLIC ACID [Concomitant]
     Active Substance: FOLIC ACID
     Indication: Supplementation therapy
     Dosage: 1.00 MILLIGRAM, QD
     Route: 048
     Dates: start: 20211021
  14. BUDESONIDE [Concomitant]
     Active Substance: BUDESONIDE
     Indication: Crohn^s disease
     Dosage: 3.00 MILLIGRAM, QD
     Route: 048
  15. BIFIDOBACTERIUM INFANTIS [Concomitant]
     Indication: Crohn^s disease
     Dosage: 4.00 MILLIGRAM, QD
     Route: 048
  16. AMLODIPINE [Concomitant]
     Active Substance: AMLODIPINE BESYLATE
     Indication: Hypertension
     Dosage: 2.50 MILLIGRAM
     Route: 048

REACTIONS (1)
  - Ileostomy [Recovered/Resolved]

NARRATIVE: CASE EVENT DATE: 20220316
